FAERS Safety Report 5383204-3 (Version None)
Quarter: 2007Q3

REPORT INFORMATION
  Report Type: 
  Country: None (occurrence: None)
  Receive Date: 20070710
  Receipt Date: 20070628
  Transmission Date: 20080115
  Serious: Yes (Hospitalization, Other)
  Sender: FDA-Public Use
  Company Number: SG-PFIZER INC-2007053038

PATIENT
  Age: 86 Year
  Sex: Female

DRUGS (1)
  1. PHENYTOIN [Suspect]
     Dates: start: 20070115, end: 20070131

REACTIONS (2)
  - PRURITUS [None]
  - RASH GENERALISED [None]
